FAERS Safety Report 4800603-6 (Version None)
Quarter: 2005Q4

REPORT INFORMATION
  Report Type: 
  Country: None (occurrence: None)
  Receive Date: 20051013
  Receipt Date: 20051013
  Transmission Date: 20060501
  Serious: Yes (Life-Threatening, Hospitalization)
  Sender: FDA-Public Use
  Company Number: None

PATIENT
  Age: 55 Year
  Sex: Female
  Weight: 54.1 kg

DRUGS (1)
  1. GEMCITABINE [Suspect]
     Indication: OVARIAN CANCER
     Dates: start: 20050201

REACTIONS (8)
  - BLOOD CREATININE INCREASED [None]
  - BLOOD PRESSURE DIASTOLIC DECREASED [None]
  - BLOOD PRESSURE SYSTOLIC INCREASED [None]
  - DIALYSIS [None]
  - HAEMATOCRIT DECREASED [None]
  - HEADACHE [None]
  - PLATELET COUNT DECREASED [None]
  - VISUAL DISTURBANCE [None]
